FAERS Safety Report 18888173 (Version 42)
Quarter: 2024Q4

REPORT INFORMATION
  Report Type: Spontaneous
  Country: CA (occurrence: CA)
  Receive Date: 20210213
  Receipt Date: 20241014
  Transmission Date: 20250115
  Serious: Yes (Hospitalization, Other)
  Sender: CELLTRION
  Company Number: CA-CELLTRION INC.-2020CA023403

PATIENT

DRUGS (53)
  1. INFLECTRA [Suspect]
     Active Substance: INFLIXIMAB-DYYB
     Indication: Juvenile idiopathic arthritis
     Dosage: 300 MG 0, 2, THEN EVERY 4 WEEKS (, INCLUDES INDUCTION DOSES AT WEEK 0 AND 2 THEN EVERY 4 WEEKS)
     Route: 042
     Dates: start: 20200707, end: 20200707
  2. INFLECTRA [Suspect]
     Active Substance: INFLIXIMAB-DYYB
     Indication: Crohn^s disease
     Dosage: 300 MG,  0, 2, THEN EVERY 4 WEEKS
     Route: 042
     Dates: start: 20200724
  3. INFLECTRA [Suspect]
     Active Substance: INFLIXIMAB-DYYB
     Dosage: 300 MG,  0, 2, THEN EVERY 4 WEEKS
     Route: 042
     Dates: start: 20200821, end: 20200821
  4. INFLECTRA [Suspect]
     Active Substance: INFLIXIMAB-DYYB
     Dosage: 300 MG,  0, 2, THEN EVERY 4 WEEKS
     Route: 042
     Dates: start: 20200918, end: 20200918
  5. INFLECTRA [Suspect]
     Active Substance: INFLIXIMAB-DYYB
     Dosage: 300 MG,  0, 2, THEN EVERY 4 WEEKS
     Route: 042
     Dates: start: 20201016
  6. INFLECTRA [Suspect]
     Active Substance: INFLIXIMAB-DYYB
     Dosage: 300 MG,  0, 2, THEN EVERY 4 WEEKS
     Route: 042
     Dates: start: 20201113
  7. INFLECTRA [Suspect]
     Active Substance: INFLIXIMAB-DYYB
     Dosage: 300 MG,  0, 2, THEN EVERY 4 WEEKS
     Route: 042
     Dates: start: 20201211
  8. INFLECTRA [Suspect]
     Active Substance: INFLIXIMAB-DYYB
     Dosage: 300 MG, 0, 2, THEN EVERY 4 WEEKS
     Route: 042
     Dates: start: 20210105
  9. INFLECTRA [Suspect]
     Active Substance: INFLIXIMAB-DYYB
     Dosage: 500 MG, EVERY 4 WEEKS
     Route: 042
     Dates: start: 20210204, end: 20210204
  10. INFLECTRA [Suspect]
     Active Substance: INFLIXIMAB-DYYB
     Dosage: 500 MG, EVERY 4 WEEKS
     Route: 042
     Dates: start: 20210405
  11. INFLECTRA [Suspect]
     Active Substance: INFLIXIMAB-DYYB
     Dosage: 500 MG, EVERY 4 WEEKS
     Route: 042
     Dates: start: 20210430
  12. INFLECTRA [Suspect]
     Active Substance: INFLIXIMAB-DYYB
     Dosage: 500 MG, EVERY 4 WEEKS
     Route: 042
     Dates: start: 20210430
  13. INFLECTRA [Suspect]
     Active Substance: INFLIXIMAB-DYYB
     Dosage: 500 MG, EVERY 4 WEEKS
     Route: 042
     Dates: start: 20210602
  14. INFLECTRA [Suspect]
     Active Substance: INFLIXIMAB-DYYB
     Dosage: 500 MG, EVERY 4 WEEKS
     Route: 042
     Dates: start: 20210708
  15. INFLECTRA [Suspect]
     Active Substance: INFLIXIMAB-DYYB
     Dosage: 500 MG, EVERY 4 WEEKS
     Route: 042
     Dates: start: 20210708
  16. INFLECTRA [Suspect]
     Active Substance: INFLIXIMAB-DYYB
     Dosage: 500 MG, EVERY 4 WEEKS
     Route: 042
     Dates: start: 20210805
  17. INFLECTRA [Suspect]
     Active Substance: INFLIXIMAB-DYYB
     Dosage: 500 MG, EVERY 4 WEEKS
     Route: 042
     Dates: start: 20210902
  18. INFLECTRA [Suspect]
     Active Substance: INFLIXIMAB-DYYB
     Dosage: 500 MG, EVERY 4 WEEKS
     Route: 042
     Dates: start: 20210902
  19. INFLECTRA [Suspect]
     Active Substance: INFLIXIMAB-DYYB
     Dosage: 500 MG, EVERY 4 WEEKS
     Route: 042
     Dates: start: 20211028
  20. INFLECTRA [Suspect]
     Active Substance: INFLIXIMAB-DYYB
     Dosage: 500 MG, EVERY 4 WEEKS
     Route: 042
     Dates: start: 20211125
  21. INFLECTRA [Suspect]
     Active Substance: INFLIXIMAB-DYYB
     Dosage: 500 MG, EVERY 4 WEEKS
     Route: 042
     Dates: start: 20211222
  22. INFLECTRA [Suspect]
     Active Substance: INFLIXIMAB-DYYB
     Dosage: 500 MG, EVERY 4 WEEKS
     Route: 042
     Dates: start: 20220121
  23. INFLECTRA [Suspect]
     Active Substance: INFLIXIMAB-DYYB
     Dosage: 500 MG, EVERY 4 WEEKS
     Route: 042
     Dates: start: 20220218
  24. INFLECTRA [Suspect]
     Active Substance: INFLIXIMAB-DYYB
     Dosage: 500 MG, EVERY 4 WEEKS
     Route: 042
     Dates: start: 20220321
  25. INFLECTRA [Suspect]
     Active Substance: INFLIXIMAB-DYYB
     Dosage: 500 MG, EVERY 4 WEEKS
     Route: 042
     Dates: start: 20220418
  26. INFLECTRA [Suspect]
     Active Substance: INFLIXIMAB-DYYB
     Dosage: 500 MG, EVERY 4 WEEKS
     Route: 042
     Dates: start: 20220516
  27. INFLECTRA [Suspect]
     Active Substance: INFLIXIMAB-DYYB
     Dosage: 500 MG, EVERY 4 WEEKS
     Route: 042
     Dates: start: 20220714
  28. INFLECTRA [Suspect]
     Active Substance: INFLIXIMAB-DYYB
     Dosage: 500 MG, EVERY 4 WEEKS
     Route: 042
     Dates: start: 20220817
  29. INFLECTRA [Suspect]
     Active Substance: INFLIXIMAB-DYYB
     Dosage: 10 MG/KG, EVERY 4 WEEKS
     Route: 042
     Dates: start: 20221017
  30. INFLECTRA [Suspect]
     Active Substance: INFLIXIMAB-DYYB
     Dosage: 10 MG/KG, EVERY 4 WEEKS
     Route: 042
     Dates: start: 20221117
  31. INFLECTRA [Suspect]
     Active Substance: INFLIXIMAB-DYYB
     Dosage: 10 MG/KG, EVERY 4 WEEKS
     Route: 042
     Dates: start: 20230111
  32. INFLECTRA [Suspect]
     Active Substance: INFLIXIMAB-DYYB
     Dosage: 640 MG
     Route: 042
     Dates: start: 20230207
  33. INFLECTRA [Suspect]
     Active Substance: INFLIXIMAB-DYYB
     Dosage: 640 MG
     Route: 042
     Dates: start: 20230207
  34. INFLECTRA [Suspect]
     Active Substance: INFLIXIMAB-DYYB
     Dosage: 580 MG (10 MG/KG, EVERY 4 WEEKS)
     Route: 042
     Dates: start: 20230309
  35. INFLECTRA [Suspect]
     Active Substance: INFLIXIMAB-DYYB
     Dosage: 580 MG (10 MG/KG, EVERY 4 WEEKS)
     Route: 042
     Dates: start: 20230410
  36. INFLECTRA [Suspect]
     Active Substance: INFLIXIMAB-DYYB
     Dosage: 580 MG (10 MG/KG, EVERY 4 WEEKS)
     Route: 042
     Dates: start: 20230410
  37. INFLECTRA [Suspect]
     Active Substance: INFLIXIMAB-DYYB
     Dosage: 550 MG,(10MG/KG) 6 WEEKS(5 WEEKS AND 4 DAYS),(EVERY 4 WEEKS)
     Route: 042
     Dates: start: 20230519, end: 20230519
  38. ENTOCORT [Concomitant]
     Active Substance: BUDESONIDE
     Dosage: 3 MG
     Route: 065
  39. ESCITALOPRAM [Concomitant]
     Active Substance: ESCITALOPRAM OXALATE
     Dosage: 10 MG
     Route: 048
     Dates: start: 20210201
  40. FLAGYL [Concomitant]
     Active Substance: METRONIDAZOLE\METRONIDAZOLE HYDROCHLORIDE
     Dosage: 500 MG X7
     Dates: end: 20221222
  41. GABAPENTIN [Concomitant]
     Active Substance: GABAPENTIN
     Dosage: 300 MG
     Route: 048
     Dates: end: 20211001
  42. LAMOTRIGINE [Concomitant]
     Active Substance: LAMOTRIGINE
     Indication: Mood swings
     Dosage: UNK
  43. REXULTI [Concomitant]
     Active Substance: BREXPIPRAZOLE
     Dosage: 2 MG
     Route: 048
     Dates: end: 20210701
  44. SEROQUEL [Concomitant]
     Active Substance: QUETIAPINE FUMARATE
     Dosage: 25 MG
     Route: 048
     Dates: start: 20210201, end: 20211231
  45. SEROQUEL [Concomitant]
     Active Substance: QUETIAPINE FUMARATE
     Dosage: 1 DF,DOSE - EITHER 100 OR 200 MG (NOT CLARIFIED)
     Route: 048
     Dates: start: 20220101
  46. SEROQUEL [Concomitant]
     Active Substance: QUETIAPINE FUMARATE
     Dosage: 200 MG OR 100 MG  (NOT CLARIFIED)
     Route: 048
  47. SEROQUEL [Concomitant]
     Active Substance: QUETIAPINE FUMARATE
     Dosage: 200 MG
     Route: 048
  48. SEROQUEL [Concomitant]
     Active Substance: QUETIAPINE FUMARATE
     Dosage: 100 MG
     Route: 048
  49. SULFASALAZINE [Concomitant]
     Active Substance: SULFASALAZINE
     Dosage: 1.5 G, 2X/DAY
     Route: 065
  50. SULFASALAZINE [Concomitant]
     Active Substance: SULFASALAZINE
     Dosage: 1.5 G, 2X/DAY, (1.5 GRAMS TWICE DAILY   )
     Route: 065
  51. SULFASALAZINE [Concomitant]
     Active Substance: SULFASALAZINE
     Dosage: 1 G, 2X/DAY (1 GM OR 1.5 GM TWICE DAILY)
     Route: 065
  52. SULFASALAZINE [Concomitant]
     Active Substance: SULFASALAZINE
     Dosage: 1 G, 2X/DAY, 1.5 GRAMS TWICE DAILY
     Route: 065
  53. TRAZODONE [Concomitant]
     Active Substance: TRAZODONE HYDROCHLORIDE
     Dosage: 50 MG
     Route: 048
     Dates: start: 20210201

REACTIONS (38)
  - Pneumonia [Unknown]
  - Beta haemolytic streptococcal infection [Unknown]
  - Candida infection [Unknown]
  - Premature separation of placenta [Recovering/Resolving]
  - Birth trauma [Recovering/Resolving]
  - Maternal exposure during pregnancy [Unknown]
  - Condition aggravated [Not Recovered/Not Resolved]
  - Asthma [Not Recovered/Not Resolved]
  - Eye infection [Recovered/Resolved]
  - Vomiting [Not Recovered/Not Resolved]
  - Nausea [Not Recovered/Not Resolved]
  - Foreign body [Not Recovered/Not Resolved]
  - Meniscus injury [Unknown]
  - Eye ulcer [Not Recovered/Not Resolved]
  - Therapeutic response shortened [Unknown]
  - Heart rate decreased [Unknown]
  - Arthralgia [Not Recovered/Not Resolved]
  - Gastrooesophageal reflux disease [Not Recovered/Not Resolved]
  - Migraine [Recovering/Resolving]
  - Aphthous ulcer [Recovered/Resolved]
  - Tooth fracture [Recovering/Resolving]
  - Tooth infection [Recovering/Resolving]
  - Sinusitis [Recovered/Resolved]
  - Blood pressure increased [Unknown]
  - Illness [Not Recovered/Not Resolved]
  - Malaise [Recovering/Resolving]
  - Abdominal discomfort [Recovering/Resolving]
  - Night sweats [Recovering/Resolving]
  - Eating disorder [Recovering/Resolving]
  - Bowel movement irregularity [Recovering/Resolving]
  - Pyrexia [Recovered/Resolved]
  - Rhinorrhoea [Recovering/Resolving]
  - Iritis [Unknown]
  - Mouth ulceration [Recovering/Resolving]
  - Off label use [Unknown]
  - Intentional product use issue [Unknown]
  - Off label use [Unknown]
  - Inappropriate schedule of product administration [Unknown]

NARRATIVE: CASE EVENT DATE: 20200707
